FAERS Safety Report 8886053 (Version 1)
Quarter: 2012Q4

REPORT INFORMATION
  Report Type: 
  Country: US (occurrence: US)
  Receive Date: 20121105
  Receipt Date: 20121105
  Transmission Date: 20130627
  Serious: No
  Sender: FDA-Public Use
  Company Number: US-009507513-1210USA010739

PATIENT
  Age: 70 Year
  Sex: Male

DRUGS (3)
  1. NASONEX [Suspect]
     Dosage: UNK
     Route: 045
     Dates: start: 2012
  2. NASONEX [Suspect]
     Dosage: 2 sprays in each nostril, UNK
     Route: 045
     Dates: start: 20121021
  3. BAYER ASPIRIN [Concomitant]

REACTIONS (1)
  - Dizziness [Not Recovered/Not Resolved]
